FAERS Safety Report 6739468-4 (Version None)
Quarter: 2010Q2

REPORT INFORMATION
  Report Type: 
  Country: None (occurrence: None)
  Receive Date: 20100525
  Receipt Date: 20100520
  Transmission Date: 20101027
  Serious: No
  Sender: FDA-Public Use
  Company Number: US-ROXANE LABORATORIES, INC.-2010-RO-00504RO

PATIENT
  Sex: Male

DRUGS (2)
  1. AMLODIPINE [Suspect]
     Indication: HYPERTENSION
     Dosage: 5 MG
     Route: 048
  2. BYSTOLIC [Concomitant]

REACTIONS (1)
  - DRUG INEFFECTIVE [None]
